FAERS Safety Report 4488763-0 (Version None)
Quarter: 2004Q3

REPORT INFORMATION
  Report Type: 
  Country: None (occurrence: None)
  Receive Date: 20040921
  Receipt Date: 20040430
  Transmission Date: 20050211
  Serious: Yes (Other)
  Sender: FDA-Public Use
  Company Number: 163-20785-04050045

PATIENT
  Age: 35 Year
  Sex: Female

DRUGS (1)
  1. THALOMID [Suspect]
     Indication: ERYTHEMA NODOSUM
     Dosage: 200 MG, DAILY, ORAL
     Route: 048
     Dates: start: 20030806, end: 20030910

REACTIONS (2)
  - DIZZINESS [None]
  - SYNCOPE [None]
